FAERS Safety Report 25528439 (Version 1)
Quarter: 2025Q3

REPORT INFORMATION
  Report Type: Spontaneous
  Country: US (occurrence: US)
  Receive Date: 20250708
  Receipt Date: 20250708
  Transmission Date: 20251021
  Serious: Yes (Disabling, Other)
  Sender: Pyros Pharmaceuticals
  Company Number: US-PYROS PHARMACEUTICALS, INC-20250600901

PATIENT
  Sex: Female

DRUGS (1)
  1. VIGAFYDE [Suspect]
     Active Substance: VIGABATRIN
     Indication: Infantile spasms
     Route: 048
     Dates: start: 20250329

REACTIONS (1)
  - Deafness [Not Recovered/Not Resolved]

NARRATIVE: CASE EVENT DATE: 20250101
